FAERS Safety Report 23868484 (Version 2)
Quarter: 2024Q2

REPORT INFORMATION
  Report Type: Spontaneous
  Country: CN (occurrence: CN)
  Receive Date: 20240517
  Receipt Date: 20240522
  Transmission Date: 20240715
  Serious: Yes (Hospitalization)
  Sender: FDA-Public Use
  Company Number: CN-PFIZER INC-PV202400063705

PATIENT
  Age: 34 Year
  Sex: Male
  Weight: 74 kg

DRUGS (4)
  1. METHYLPREDNISOLONE SODIUM SUCCINATE [Suspect]
     Active Substance: METHYLPREDNISOLONE SODIUM SUCCINATE
     Indication: Leukaemia
     Dosage: 20 MG, 1X/DAY
     Route: 042
     Dates: start: 20240411, end: 20240425
  2. METHYLPREDNISOLONE [Suspect]
     Active Substance: METHYLPREDNISOLONE
     Indication: Dermatitis allergic
     Dosage: 12 MG, 1X/DAY
     Route: 048
     Dates: start: 20240425, end: 20240504
  3. DESLORATADINE [Concomitant]
     Active Substance: DESLORATADINE
     Indication: Dermatitis allergic
     Dosage: 5.000 MG, 1X/DAY
     Route: 048
     Dates: start: 20240411, end: 20240422
  4. SODIUM CHLORIDE [Concomitant]
     Active Substance: SODIUM CHLORIDE
     Indication: Vehicle solution use
     Dosage: 100.000 ML, 1X/DAY
     Route: 041
     Dates: start: 20240411, end: 20240425

REACTIONS (4)
  - Superinfection [Recovering/Resolving]
  - Rash [Recovering/Resolving]
  - Pruritus [Recovering/Resolving]
  - Herpes zoster [Recovering/Resolving]

NARRATIVE: CASE EVENT DATE: 20240425
